FAERS Safety Report 24809403 (Version 1)
Quarter: 2025Q1

REPORT INFORMATION
  Report Type: Spontaneous
  Country: US (occurrence: US)
  Receive Date: 20250106
  Receipt Date: 20250106
  Transmission Date: 20250409
  Serious: Yes (Other)
  Sender: AMGEN
  Company Number: US-AMGEN-USASP2024256846

PATIENT
  Sex: Male

DRUGS (17)
  1. ENBREL [Suspect]
     Active Substance: ETANERCEPT
     Indication: Product used for unknown indication
     Route: 065
     Dates: start: 20191120
  2. ACTEMRA [Concomitant]
     Active Substance: TOCILIZUMAB
  3. AMLODIPINE [Concomitant]
     Active Substance: AMLODIPINE BESYLATE
  4. CARBIDOPA [Concomitant]
     Active Substance: CARBIDOPA
  5. MINERALS\VITAMINS [Concomitant]
     Active Substance: MINERALS\VITAMINS
  6. CLONAZEPAM [Concomitant]
     Active Substance: CLONAZEPAM
  7. CYCLOBENZAPRINE [Concomitant]
     Active Substance: CYCLOBENZAPRINE
  8. FOLIC ACID [Concomitant]
     Active Substance: FOLIC ACID
  9. GABAPENTIN [Concomitant]
     Active Substance: GABAPENTIN
  10. HYDROXYCHLOROQUINE [Concomitant]
     Active Substance: HYDROXYCHLOROQUINE
  11. LISINOPRIL [Concomitant]
     Active Substance: LISINOPRIL
  12. MAGNESIUM [Concomitant]
     Active Substance: MAGNESIUM
  13. MEDROL [Concomitant]
     Active Substance: METHYLPREDNISOLONE
  14. METHOTREXATE SODIUM [Concomitant]
     Active Substance: METHOTREXATE SODIUM
  15. TRAMADOL [Concomitant]
     Active Substance: TRAMADOL
  16. TYLENOL [Concomitant]
     Active Substance: ACETAMINOPHEN
  17. ZONISAMIDE [Concomitant]
     Active Substance: ZONISAMIDE

REACTIONS (1)
  - Unevaluable event [Unknown]
